FAERS Safety Report 25096045 (Version 1)
Quarter: 2025Q1

REPORT INFORMATION
  Report Type: Spontaneous
  Country: US (occurrence: US)
  Receive Date: 20250319
  Receipt Date: 20250319
  Transmission Date: 20250409
  Serious: Yes (Other)
  Sender: SANOFI AVENTIS
  Company Number: US-SA-2025SA078861

PATIENT
  Sex: Female
  Weight: 141 kg

DRUGS (3)
  1. DUPIXENT [Suspect]
     Active Substance: DUPILUMAB
     Indication: Dermatitis atopic
     Route: 058
  2. DUPIXENT [Suspect]
     Active Substance: DUPILUMAB
     Dosage: 300 MG, QOW
     Route: 058
  3. Vitamin D3 K2 [Concomitant]
     Indication: Malabsorption
     Dosage: 1 DAILY

REACTIONS (2)
  - Clostridium difficile infection [Unknown]
  - Malabsorption [Unknown]
